FAERS Safety Report 19642301 (Version 1)
Quarter: 2021Q3

REPORT INFORMATION
  Report Type: Spontaneous
  Country: US (occurrence: US)
  Receive Date: 20210730
  Receipt Date: 20210730
  Transmission Date: 20211014
  Serious: No
  Sender: FDA-Public Use
  Company Number: US-SA-2021SA248421

PATIENT
  Sex: Female

DRUGS (2)
  1. TOZINAMERAN. [Suspect]
     Active Substance: TOZINAMERAN
  2. KEVZARA [Suspect]
     Active Substance: SARILUMAB

REACTIONS (2)
  - Pain [Unknown]
  - Fatigue [Unknown]
